FAERS Safety Report 23851349 (Version 1)
Quarter: 2024Q2

REPORT INFORMATION
  Report Type: Other
  Country: FR (occurrence: FR)
  Receive Date: 20240514
  Receipt Date: 20240514
  Transmission Date: 20240716
  Serious: No
  Sender: FDA-Public Use
  Company Number: None

PATIENT
  Age: 58 Year
  Sex: Female
  Weight: 90 kg

DRUGS (2)
  1. FLUDEOXYGLUCOSE F-18 [Suspect]
     Active Substance: FLUDEOXYGLUCOSE F-18
     Indication: Imaging procedure
     Dosage: TOTAL DOSE: 1 DOSAGE FORM
     Route: 065
     Dates: start: 20231115, end: 20231115
  2. VISIPAQUE [Suspect]
     Active Substance: IODIXANOL
     Indication: Computerised tomogram
     Dosage: TOTAL DOSE: 1 DOSAGE FORM
     Route: 065
     Dates: start: 20231115, end: 20231115

REACTIONS (2)
  - Rash maculo-papular [Recovered/Resolved]
  - Allergy test negative [Recovered/Resolved]

NARRATIVE: CASE EVENT DATE: 20231115
